FAERS Safety Report 17202846 (Version 2)
Quarter: 2020Q1

REPORT INFORMATION
  Report Type: Spontaneous
  Country: US (occurrence: US)
  Receive Date: 20191226
  Receipt Date: 20200214
  Transmission Date: 20200409
  Serious: Yes (Other)
  Sender: FDA-Public Use
  Company Number: US-PFIZER INC-2019470602

PATIENT
  Age: 71 Year
  Sex: Male

DRUGS (2)
  1. SUTENT [Suspect]
     Active Substance: SUNITINIB MALATE
     Indication: RENAL CANCER
     Dosage: 1 DF, CYCLIC (1CAP, ORAL, DAILY TAKE 2 WEEKS ON, 1 WEEK OFF)
     Route: 048
  2. SUTENT [Suspect]
     Active Substance: SUNITINIB MALATE
     Dosage: 37.5 MG, CYCLIC (1 CAP ORAL DAILY, TAKE 1 WEEK ON, 1 WEEK OFF)
     Route: 048

REACTIONS (3)
  - Chronic kidney disease [Unknown]
  - Hypertension [Unknown]
  - Anaemia [Unknown]
